FAERS Safety Report 5510160-7 (Version None)
Quarter: 2007Q4

REPORT INFORMATION
  Report Type: 
  Country: None (occurrence: None)
  Receive Date: 20071108
  Receipt Date: 20071105
  Transmission Date: 20080405
  Serious: Yes (Other)
  Sender: FDA-Public Use
  Company Number: DE-BRISTOL-MYERS SQUIBB COMPANY-13969852

PATIENT
  Age: 26 Year
  Sex: Male

DRUGS (17)
  1. METHOTREXATE [Suspect]
  2. CYCLOPHOSPHAMIDE [Suspect]
     Indication: T-CELL TYPE ACUTE LEUKAEMIA
  3. ETOPOSIDE [Suspect]
  4. AMSACRINE [Suspect]
  5. VINCRISTINE SULFATE [Suspect]
     Indication: T-CELL TYPE ACUTE LEUKAEMIA
  6. CYCLOSPORINE [Suspect]
  7. CLADRIBINE [Suspect]
  8. CYTARABINE [Suspect]
     Indication: T-CELL TYPE ACUTE LEUKAEMIA
  9. DAUNORUBICIN HCL [Suspect]
     Indication: T-CELL TYPE ACUTE LEUKAEMIA
  10. DEXAMETHASONE [Suspect]
     Indication: T-CELL TYPE ACUTE LEUKAEMIA
  11. FLUDARABINE PHOSPHATE [Suspect]
  12. MERCAPTOPURINE [Suspect]
     Indication: T-CELL TYPE ACUTE LEUKAEMIA
  13. PEGASPARGASE [Suspect]
     Indication: T-CELL TYPE ACUTE LEUKAEMIA
  14. ANTITHYMOCYTE GLOBULIN [Suspect]
  15. RADIOTHERAPY [Suspect]
  16. VINDESINE [Suspect]
  17. CAMPATH [Suspect]

REACTIONS (5)
  - NEOPLASM RECURRENCE [None]
  - NEUTROPENIA [None]
  - PYREXIA [None]
  - SINUSITIS [None]
  - SYSTEMIC CANDIDA [None]
